FAERS Safety Report 20928878 (Version 4)
Quarter: 2022Q3

REPORT INFORMATION
  Report Type: Spontaneous
  Country: CZ (occurrence: CZ)
  Receive Date: 20220607
  Receipt Date: 20220830
  Transmission Date: 20221027
  Serious: Yes (Death, Hospitalization, Other)
  Sender: FDA-Public Use
  Company Number: CZ-BAXTER-2022BAX011190

PATIENT
  Age: 78 Year
  Sex: Female
  Weight: 55 kg

DRUGS (29)
  1. DOXORUBICIN [Suspect]
     Active Substance: DOXORUBICIN
     Indication: Diffuse large B-cell lymphoma stage IV
     Dosage: REGIMEN 1, 50 MG/M2, EVERY 3 WK
     Route: 042
     Dates: start: 20210420, end: 20210816
  2. CYCLOPHOSPHAMIDE [Suspect]
     Active Substance: CYCLOPHOSPHAMIDE
     Indication: Diffuse large B-cell lymphoma stage IV
     Dosage: REGIMEN 1, 750 MG/M2, EVERY 3 WK
     Route: 042
     Dates: start: 20210420, end: 20210816
  3. RITUXIMAB [Suspect]
     Active Substance: RITUXIMAB
     Indication: Diffuse large B-cell lymphoma stage IV
     Dosage: REGIMEN 1, 375 MG/M2, EVERY 3 WK
     Route: 042
     Dates: start: 20210420, end: 20210816
  4. VINCRISTINE [Suspect]
     Active Substance: VINCRISTINE
     Indication: Diffuse large B-cell lymphoma stage IV
     Dosage: REGIMEN 1, 1.4 MG/M2, EVERY 3 WK
     Route: 042
     Dates: start: 20210420, end: 20210816
  5. METHYLPREDNISOLONE [Suspect]
     Active Substance: METHYLPREDNISOLONE
     Indication: Diffuse large B-cell lymphoma stage IV
     Dosage: REGIMEN 1, 80 MG, QD
     Route: 042
     Dates: start: 20210420, end: 20210420
  6. METHYLPREDNISOLONE [Suspect]
     Active Substance: METHYLPREDNISOLONE
     Dosage: REGIMEN 2, 80 MG, QD
     Route: 042
     Dates: start: 20210510, end: 20210510
  7. METHYLPREDNISOLONE [Suspect]
     Active Substance: METHYLPREDNISOLONE
     Dosage: REGIMEN 3, 80 MG, QD
     Route: 042
     Dates: start: 20210614, end: 20210614
  8. METHYLPREDNISOLONE [Suspect]
     Active Substance: METHYLPREDNISOLONE
     Dosage: REGIMEN 4, 80 MG, QD
     Route: 042
     Dates: start: 20210726, end: 20210726
  9. METHYLPREDNISOLONE [Suspect]
     Active Substance: METHYLPREDNISOLONE
     Dosage: REGIMEN 5, 80 MG, QD
     Route: 042
     Dates: start: 20210816, end: 20210816
  10. PREDNISONE [Suspect]
     Active Substance: PREDNISONE
     Indication: Diffuse large B-cell lymphoma stage IV
     Dosage: REGIMEN 1,  100 MG, QD
     Route: 048
     Dates: start: 20210421, end: 20210424
  11. PREDNISONE [Suspect]
     Active Substance: PREDNISONE
     Dosage: REGIMEN 2, 100 MG, QD
     Route: 048
     Dates: start: 20210511, end: 20210514
  12. PREDNISONE [Suspect]
     Active Substance: PREDNISONE
     Dosage: REGIMEN 3, 100 MG, QD
     Route: 048
     Dates: start: 20210615, end: 20210618
  13. PREDNISONE [Suspect]
     Active Substance: PREDNISONE
     Dosage: REGIMEN 4,  100 MG, QD
     Route: 048
     Dates: start: 20210727, end: 20210730
  14. PREDNISONE [Suspect]
     Active Substance: PREDNISONE
     Dosage: REGIMEN 5, 100 MG, QD
     Route: 048
     Dates: start: 20210817, end: 20210820
  15. BISULEPIN [Concomitant]
     Active Substance: BISULEPIN
     Indication: Premedication
     Dosage: 2 MG
     Route: 048
     Dates: start: 20220228, end: 20220228
  16. Paralen [Concomitant]
     Indication: Premedication
     Dosage: 1000 MG
     Route: 048
     Dates: start: 20220228, end: 20220228
  17. PREDNISONE [Concomitant]
     Active Substance: PREDNISONE
     Indication: Prophylaxis
     Dosage: 100 MG
     Route: 048
     Dates: start: 20210427, end: 20210429
  18. PREDNISONE [Concomitant]
     Active Substance: PREDNISONE
     Dosage: 100 MG
     Route: 048
     Dates: start: 20210503, end: 20210503
  19. PREDNISONE [Concomitant]
     Active Substance: PREDNISONE
     Dosage: 100 MG
     Route: 048
     Dates: start: 20220228, end: 20220228
  20. AMLODIPINE BESYLATE [Concomitant]
     Active Substance: AMLODIPINE BESYLATE
     Indication: Product used for unknown indication
     Dosage: UNK
     Route: 065
     Dates: start: 202006
  21. GRANISETRON HYDROCHLORIDE [Concomitant]
     Active Substance: GRANISETRON HYDROCHLORIDE
     Indication: Product used for unknown indication
     Dosage: UNK
     Route: 065
     Dates: start: 20210420
  22. LANSOPRAZOLE [Concomitant]
     Active Substance: LANSOPRAZOLE
     Indication: Product used for unknown indication
     Dosage: UNK
     Route: 065
     Dates: start: 2020
  23. ZALDIAR [Concomitant]
     Active Substance: ACETAMINOPHEN\TRAMADOL HYDROCHLORIDE
     Indication: Product used for unknown indication
     Dosage: UNK
     Route: 065
     Dates: start: 2018
  24. Neurol [Concomitant]
     Indication: Product used for unknown indication
     Dosage: UNK
     Route: 065
     Dates: start: 20210414
  25. VALACYCLOVIR HYDROCHLORIDE [Concomitant]
     Active Substance: VALACYCLOVIR HYDROCHLORIDE
     Indication: Product used for unknown indication
     Dosage: UNK
     Route: 065
     Dates: start: 20210414
  26. ALLOPURINOL [Concomitant]
     Active Substance: ALLOPURINOL
     Indication: Product used for unknown indication
     Dosage: UNK
     Route: 065
     Dates: start: 20210414
  27. SULFAMETHOXAZOLE\TRIMETHOPRIM [Concomitant]
     Active Substance: SULFAMETHOXAZOLE\TRIMETHOPRIM
     Indication: Product used for unknown indication
     Dosage: UNK
     Route: 065
     Dates: start: 20210414
  28. METAMIZOLE [Concomitant]
     Active Substance: METAMIZOLE
     Indication: Product used for unknown indication
     Dosage: UNK
     Route: 065
     Dates: start: 20210414
  29. POTASSIUM CHLORIDE [Concomitant]
     Active Substance: POTASSIUM CHLORIDE
     Indication: Product used for unknown indication
     Dosage: UNK
     Route: 065
     Dates: start: 20220413

REACTIONS (2)
  - COVID-19 pneumonia [Fatal]
  - COVID-19 pneumonia [Recovered/Resolved]

NARRATIVE: CASE EVENT DATE: 20220311
